FAERS Safety Report 4694068-5 (Version None)
Quarter: 2005Q2

REPORT INFORMATION
  Report Type: 
  Country: None (occurrence: None)
  Receive Date: 20050616
  Receipt Date: 20050603
  Transmission Date: 20051028
  Serious: Yes (Hospitalization, Other)
  Sender: FDA-Public Use
  Company Number: 2005066602

PATIENT
  Sex: Male

DRUGS (15)
  1. CAVERJECT [Suspect]
     Indication: ERECTILE DYSFUNCTION
     Dosage: 7.5 MG
     Dates: end: 20050101
  2. CLOPIDOGREL BISULFATE [Concomitant]
  3. METFORMIN HCL [Concomitant]
  4. PIOGLITAZONE HCL [Concomitant]
  5. GLIPIZIDE [Concomitant]
  6. SULINDAC [Concomitant]
  7. FUROSEMIDE [Concomitant]
  8. ISOSORBIDE MONONITRATE [Concomitant]
  9. ENALAPRIL MALEATE [Concomitant]
  10. NITRO (GLYCERYL TRINITRATE) [Concomitant]
  11. IMIPRAMINE HCL [Concomitant]
  12. CLONAZEPAM [Concomitant]
  13. CARBAMAZEPINE [Concomitant]
  14. ACETYLSALICYLIC ACID SRT [Concomitant]
  15. CRESTOR [Concomitant]

REACTIONS (4)
  - BLOOD CHOLESTEROL INCREASED [None]
  - DEPRESSION [None]
  - NERVOUSNESS [None]
  - SLEEP DISORDER [None]
